FAERS Safety Report 7151337-7 (Version None)
Quarter: 2010Q4

REPORT INFORMATION
  Report Type: 
  Country: None (occurrence: None)
  Receive Date: 20101210
  Receipt Date: 20101203
  Transmission Date: 20110411
  Serious: Yes (Death, Hospitalization, Other)
  Sender: FDA-Public Use
  Company Number: GB-PFIZER INC-2010146566

PATIENT
  Age: 19 Year
  Sex: Male
  Weight: 86 kg

DRUGS (6)
  1. IBUPROFEN [Suspect]
  2. PHENYLPROPANOLAMINE HCL [Suspect]
  3. PHENYTOIN [Suspect]
  4. CYCLOBENZAPRINE [Suspect]
  5. CHLORPHENIRAMINE [Suspect]
  6. LIDOCAINE [Suspect]

REACTIONS (14)
  - ACCELERATED IDIOVENTRICULAR RHYTHM [None]
  - ARRHYTHMIA [None]
  - ASPARTATE AMINOTRANSFERASE INCREASED [None]
  - BLOOD LACTATE DEHYDROGENASE INCREASED [None]
  - COMA [None]
  - COMPLETED SUICIDE [None]
  - HYPOTENSION [None]
  - INTENTIONAL SELF-INJURY [None]
  - LETHARGY [None]
  - METABOLIC ACIDOSIS [None]
  - MULTIPLE DRUG OVERDOSE [None]
  - SINUS TACHYCARDIA [None]
  - VENTRICULAR TACHYCARDIA [None]
  - VOMITING [None]
